FAERS Safety Report 7714220 (Version 5)
Quarter: 2014Q2

REPORT INFORMATION
  Report Type: Report from Study
  Country: DE (occurrence: DE)
  Receive Date: 20101216
  Receipt Date: 20140423
  Transmission Date: 20141212
  Serious: Yes (Hospitalization, Other)
  Sender: FDA-Public Use
  Company Number: DE-ROCHE-746926

PATIENT
  Age: 76 Year
  Sex: Female
  Weight: 65 kg

DRUGS (9)
  1. BEVACIZUMAB [Suspect]
     Indication: BREAST CANCER
     Dosage: LAST DOSE PRIOR TO SAE ON 18 NOV 2010. ON DAY 1
     Route: 042
  2. BEVACIZUMAB [Suspect]
     Route: 065
  3. CAPECITABINE [Suspect]
     Indication: BREAST CANCER
     Dosage: DOSE: 1000 MG/M2. ON DAY 1-14. LAST DOSE PRIOR TO SAE ON 02 DEC 2010.
     Route: 048
  4. CAPECITABINE [Suspect]
     Route: 065
  5. VINORELBINE [Suspect]
     Indication: BREAST CANCER
     Dosage: ON DAY 1+8. LAST DOSE PRIOR TO SAE ON 18 NOVEMBER 2010.
     Route: 042
  6. VINORELBINE [Suspect]
     Route: 065
  7. PANTOZOL (GERMANY) [Concomitant]
     Route: 065
  8. VERAHEXAL [Concomitant]
     Route: 065
  9. HYDROCHLOROTHIAZIDE [Concomitant]
     Route: 065

REACTIONS (5)
  - General physical health deterioration [Unknown]
  - Mucosal inflammation [Unknown]
  - Haematotoxicity [Unknown]
  - Fatigue [Recovered/Resolved]
  - Leukopenia [Recovered/Resolved]
